FAERS Safety Report 4337411-9 (Version None)
Quarter: 2004Q2

REPORT INFORMATION
  Report Type: 
  Country: None (occurrence: None)
  Receive Date: 20040412
  Receipt Date: 20040412
  Transmission Date: 20050107
  Serious: No
  Sender: FDA-Public Use
  Company Number: None

PATIENT
  Age: 65 Year
  Sex: Male
  Weight: 101.1521 kg

DRUGS (3)
  1. SEROQUEL [Suspect]
     Indication: HYPOMANIA
     Dosage: 3 X 25MG DAILY ORAL
     Route: 048
     Dates: start: 20040313, end: 20040318
  2. SEROQUEL [Suspect]
     Indication: HYPOMANIA
     Dosage: 2 X 25MG DAILY ORAL
     Route: 048
     Dates: start: 20040319, end: 20040408
  3. DEPAKOTE ER [Concomitant]

REACTIONS (2)
  - AUTOIMMUNE DISORDER [None]
  - SALIVARY GLAND ENLARGEMENT [None]
